FAERS Safety Report 14409352 (Version 1)
Quarter: 2018Q1

REPORT INFORMATION
  Report Type: Spontaneous
  Country: US (occurrence: US)
  Receive Date: 20180119
  Receipt Date: 20180119
  Transmission Date: 20180509
  Serious: Yes (Other)
  Sender: FDA-Public Use
  Company Number: US-GLAXOSMITHKLINE-US2018008631

PATIENT
  Age: 69 Year
  Sex: Female

DRUGS (2)
  1. BREO ELLIPTA [Suspect]
     Active Substance: FLUTICASONE FUROATE\VILANTEROL TRIFENATATE
     Dosage: 200/25
  2. BREO ELLIPTA [Suspect]
     Active Substance: FLUTICASONE FUROATE\VILANTEROL TRIFENATATE
     Indication: COUGH
     Dosage: UNK
     Route: 055
     Dates: start: 201709

REACTIONS (4)
  - Lung disorder [Unknown]
  - Drug ineffective [Unknown]
  - Lung carcinoma cell type unspecified stage IV [Unknown]
  - Lung cancer metastatic [Unknown]
